FAERS Safety Report 14535515 (Version 1)
Quarter: 2018Q1

REPORT INFORMATION
  Report Type: Spontaneous
  Country: US (occurrence: US)
  Receive Date: 20180214
  Receipt Date: 20180214
  Transmission Date: 20180509
  Serious: Yes (Hospitalization, Disabling, Other)
  Sender: FDA-Public Use
  Company Number: None

PATIENT
  Age: 39 Year
  Sex: Male
  Weight: 54.45 kg

DRUGS (1)
  1. HUMIRA [Suspect]
     Active Substance: ADALIMUMAB
     Indication: CROHN^S DISEASE
     Route: 030
     Dates: start: 20180115, end: 20180115

REACTIONS (7)
  - Pleural effusion [None]
  - Chest pain [None]
  - Sepsis [None]
  - Influenza [None]
  - Pneumonia [None]
  - Dyspnoea [None]
  - Lung abscess [None]

NARRATIVE: CASE EVENT DATE: 20180116
